FAERS Safety Report 9442450 (Version 1)
Quarter: 2013Q3

REPORT INFORMATION
  Report Type: Spontaneous
  Country: US (occurrence: None)
  Receive Date: 20130805
  Receipt Date: 20130805
  Transmission Date: 20140515
  Serious: Yes (Disabling)
  Sender: FDA-Public Use
  Company Number: None

PATIENT
  Age: 64 None
  Sex: Female

DRUGS (14)
  1. ESCITALOPRAM OXALATE [Suspect]
     Indication: DEPRESSION
     Route: 048
     Dates: start: 20120330, end: 20130319
  2. LEXAPRO [Concomitant]
  3. METFORMIN [Concomitant]
  4. LISINOPRIL [Concomitant]
  5. MULTIPLE VITAMIN [Concomitant]
  6. SLO-NIACIN [Concomitant]
  7. FISH OIL [Concomitant]
  8. DEVIL CLAW [Concomitant]
  9. VITAMIN C [Concomitant]
  10. VO Q 10 PLUS READ YEAST RICE [Concomitant]
  11. HYALURONIC ACID [Concomitant]
  12. CHROME-500 [Concomitant]
  13. ADVIL [Concomitant]
  14. ALEVE [Concomitant]

REACTIONS (12)
  - Abdominal distension [None]
  - Nausea [None]
  - Abdominal pain upper [None]
  - Vomiting [None]
  - Pain [None]
  - Fatigue [None]
  - Drug ineffective [None]
  - Product substitution issue [None]
  - Flatulence [None]
  - Gastritis [None]
  - Gastrointestinal disorder [None]
  - Condition aggravated [None]
